FAERS Safety Report 10008071 (Version 3)
Quarter: 2014Q2

REPORT INFORMATION
  Report Type: Spontaneous
  Country: IT (occurrence: IT)
  Receive Date: 20140313
  Receipt Date: 20140529
  Transmission Date: 20141212
  Serious: Yes (Hospitalization)
  Sender: FDA-Public Use
  Company Number: IT-MYLANLABS-2014S1004855

PATIENT
  Age: 86 Year
  Sex: Female

DRUGS (3)
  1. FUROSEMIDE [Suspect]
     Indication: URINE OUTPUT DECREASED
     Dosage: 5 DF DAILY
     Route: 048
     Dates: start: 201312, end: 20140219
  2. KARVEZIDE [Suspect]
     Indication: HYPERTENSION
     Route: 048
     Dates: end: 20140219
  3. CARDIOASPIRIN [Concomitant]
     Indication: PRODUCT USED FOR UNKNOWN INDICATION

REACTIONS (5)
  - Drug abuse [Recovering/Resolving]
  - Hypokalaemia [Recovering/Resolving]
  - Oedema peripheral [Recovering/Resolving]
  - Renal failure acute [Recovering/Resolving]
  - Overdose [Recovering/Resolving]
